FAERS Safety Report 6574360-X (Version None)
Quarter: 2010Q1

REPORT INFORMATION
  Report Type: 
  Country: None (occurrence: None)
  Receive Date: 20100208
  Receipt Date: 20100129
  Transmission Date: 20100710
  Serious: Yes (Hospitalization, Other)
  Sender: FDA-Public Use
  Company Number: US-ABBOTT-10P-163-0620208-00

PATIENT
  Sex: Female
  Weight: 55.842 kg

DRUGS (3)
  1. HUMIRA [Suspect]
     Indication: CROHN'S DISEASE
     Route: 058
     Dates: start: 20091231
  2. HUMIRA [Suspect]
  3. IMURAN [Suspect]
     Indication: CROHN'S DISEASE
     Dates: start: 20091215, end: 20100103

REACTIONS (15)
  - ASTHENIA [None]
  - BLOOD GLUCOSE INCREASED [None]
  - BURNING SENSATION [None]
  - DECREASED APPETITE [None]
  - DIARRHOEA [None]
  - DRUG INEFFECTIVE [None]
  - ERYTHEMA [None]
  - FAECAL INCONTINENCE [None]
  - FAECES DISCOLOURED [None]
  - JOINT SWELLING [None]
  - LOWER EXTREMITY MASS [None]
  - MALAISE [None]
  - OEDEMA PERIPHERAL [None]
  - PANCREATITIS [None]
  - SKIN TIGHTNESS [None]
